FAERS Safety Report 4876908-X (Version None)
Quarter: 2006Q1

REPORT INFORMATION
  Report Type: 
  Country: None (occurrence: None)
  Receive Date: 20060110
  Receipt Date: 20051124
  Transmission Date: 20060701
  Serious: Yes (Other)
  Sender: FDA-Public Use
  Company Number: FR-SANOFI-SYNTHELABO-A02200503088

PATIENT
  Sex: Female

DRUGS (4)
  1. ELOXATIN [Suspect]
     Indication: COLON CANCER
     Route: 042
     Dates: start: 20050101, end: 20050101
  2. FLUOROURACIL [Concomitant]
     Route: 042
     Dates: start: 20050101, end: 20050101
  3. CALCIUM LEVOFOLINATE [Concomitant]
     Route: 042
     Dates: start: 20050101, end: 20050101
  4. MORPHINE [Concomitant]

REACTIONS (2)
  - CONFUSIONAL STATE [None]
  - EPILEPSY [None]
